FAERS Safety Report 5484872-8 (Version None)
Quarter: 2007Q4

REPORT INFORMATION
  Report Type: 
  Country: None (occurrence: None)
  Receive Date: 20071010
  Receipt Date: 20070925
  Transmission Date: 20080405
  Serious: Yes (Hospitalization)
  Sender: FDA-Public Use
  Company Number: B0489643A

PATIENT
  Age: 46 Year
  Sex: Female

DRUGS (3)
  1. CEFUROXIME AXETIL [Suspect]
  2. NIMESULIDE (FORMULATION UNKNOWN) (NIMESULIDE) [Suspect]
  3. BIRTH CONTROL (FORMULATION UNKNOWN) (BIRTH CONTROL) [Suspect]
     Dosage: ORAL
     Route: 048

REACTIONS (1)
  - HEPATITIS ACUTE [None]
